FAERS Safety Report 15305415 (Version 2)
Quarter: 2018Q4

REPORT INFORMATION
  Report Type: Spontaneous
  Country: US (occurrence: US)
  Receive Date: 20180822
  Receipt Date: 20181015
  Transmission Date: 20190204
  Serious: Yes (Hospitalization, Other)
  Sender: FDA-Public Use
  Company Number: US-AMGEN-USASP2018113663

PATIENT
  Age: 83 Year
  Sex: Male

DRUGS (1)
  1. ROMIPLOSTIM [Suspect]
     Active Substance: ROMIPLOSTIM
     Indication: MYELODYSPLASTIC SYNDROME
     Dosage: UNK UNK, QWK
     Route: 065

REACTIONS (5)
  - Urinary tract infection [Unknown]
  - Staphylococcal infection [Unknown]
  - Mental status changes [Unknown]
  - Flank pain [Unknown]
  - Off label use [Unknown]
